FAERS Safety Report 8865848 (Version 2)
Quarter: 2012Q4

REPORT INFORMATION
  Report Type: 
  Country: GB (occurrence: GB)
  Receive Date: 20121025
  Receipt Date: 20121126
  Transmission Date: 20130627
  Serious: Yes (Other)
  Sender: FDA-Public Use
  Company Number: PHHY2012GB051083

PATIENT
  Sex: Male

DRUGS (10)
  1. BISOPROLOL FUMARATE [Suspect]
     Indication: BLOOD PRESSURE
     Dosage: 2.5 mg, QD
     Route: 048
     Dates: start: 2011, end: 2012
  2. BISOPROLOL FUMARATE [Suspect]
     Dosage: 1.25 mg, QD
     Route: 048
     Dates: start: 2012
  3. BISOPROLOL FUMARATE [Suspect]
     Dosage: 1 DF, every other day
     Route: 048
  4. VERAPAMIL [Suspect]
     Indication: ATRIAL FLUTTER
  5. CLOPIDOGREL [Suspect]
     Indication: THROMBOCYTOPENIA
     Route: 048
  6. CHOP [Concomitant]
     Indication: NON-HODGKIN^S LYMPHOMA
  7. CYCLOPHOSPHAMIDE [Concomitant]
     Indication: NON-HODGKIN^S LYMPHOMA
  8. DOXORUBICIN [Concomitant]
     Indication: NON-HODGKIN^S LYMPHOMA
  9. PREDNISOLONE [Concomitant]
     Indication: NON-HODGKIN^S LYMPHOMA
  10. VINCRISTINE SULPHATE [Concomitant]
     Indication: NON-HODGKIN^S LYMPHOMA

REACTIONS (6)
  - Atrial flutter [Recovering/Resolving]
  - Abdominal pain upper [Recovering/Resolving]
  - Somnolence [Unknown]
  - Fatigue [Recovered/Resolved]
  - Dizziness [Recovered/Resolved]
  - Arthralgia [Unknown]
